FAERS Safety Report 6201575-2 (Version None)
Quarter: 2009Q2

REPORT INFORMATION
  Report Type: 
  Country: None (occurrence: None)
  Receive Date: 20090526
  Receipt Date: 20090513
  Transmission Date: 20091009
  Serious: Yes (Hospitalization, Other)
  Sender: FDA-Public Use
  Company Number: KR-TEVA-195423USA

PATIENT
  Sex: Male

DRUGS (5)
  1. BISELECT                           /01166101/ [Suspect]
     Indication: CARDIAC FAILURE
     Dosage: STARTED 1.25 MG, THEN UP TO 5 MG
     Route: 048
     Dates: start: 20090214
  2. ACETYLSALICYLIC ACID [Concomitant]
     Route: 048
  3. RAMIPRIL [Concomitant]
     Route: 048
  4. FUROSEMIDE [Concomitant]
     Route: 048
  5. SPIRONOLACTONE [Concomitant]
     Route: 048

REACTIONS (1)
  - CEREBRAL INFARCTION [None]
